FAERS Safety Report 6645940-8 (Version None)
Quarter: 2010Q1

REPORT INFORMATION
  Report Type: 
  Country: None (occurrence: None)
  Receive Date: 20100323
  Receipt Date: 20100318
  Transmission Date: 20100710
  Serious: Yes (Death, Other)
  Sender: FDA-Public Use
  Company Number: PHHY2009GB43455

PATIENT
  Sex: Male

DRUGS (12)
  1. CLOZARIL [Suspect]
     Indication: SCHIZOPHRENIA
     Dosage: UNK
     Dates: start: 20070822
  2. HEROIN [Suspect]
  3. DIAZEPAM [Suspect]
  4. SULPIRIDE [Suspect]
  5. CITALOPRAM HYDROBROMIDE [Concomitant]
  6. CODEINE SULFATE [Concomitant]
  7. CAFFEINE [Concomitant]
  8. IBUPROFEN [Concomitant]
  9. PARACETAMOL [Concomitant]
  10. DICLOFENAC [Concomitant]
  11. ACETAMINOPHEN AND CODEINE PHOSPHATE [Concomitant]
  12. LACTULOSE [Concomitant]

REACTIONS (16)
  - ARTERIOSCLEROSIS CORONARY ARTERY [None]
  - CARDIOVASCULAR INSUFFICIENCY [None]
  - CONJUNCTIVAL HYPERAEMIA [None]
  - CONTUSION [None]
  - DEPRESSED LEVEL OF CONSCIOUSNESS [None]
  - DRUG TOXICITY [None]
  - EPISTAXIS [None]
  - EXCORIATION [None]
  - INJURY [None]
  - MOUTH HAEMORRHAGE [None]
  - NEEDLE TRACK MARKS [None]
  - PETECHIAE [None]
  - PULMONARY OEDEMA [None]
  - RESPIRATORY DEPRESSION [None]
  - SCAR [None]
  - SKIN INJURY [None]
